FAERS Safety Report 6274153-7 (Version None)
Quarter: 2009Q3

REPORT INFORMATION
  Report Type: 
  Country: None (occurrence: None)
  Receive Date: 20090720
  Receipt Date: 20090715
  Transmission Date: 20100115
  Serious: Yes (Death, Life-Threatening, Hospitalization, Other)
  Sender: FDA-Public Use
  Company Number: PHHY2009DE01597

PATIENT
  Sex: Female
  Weight: 53 kg

DRUGS (14)
  1. EXELON [Suspect]
     Indication: PARKINSON'S DISEASE
     Dosage: 3-1.5-1.5 MG PER DAY
     Route: 048
  2. EXELON [Suspect]
     Dosage: 3 MG, BID
  3. CLOZAPINE [Suspect]
     Dosage: 12.5 MG, 5QD
     Route: 048
  4. CLOZAPINE [Suspect]
     Dosage: 75 MG DAILY
  5. OMEPRAZOLE [Concomitant]
     Dosage: 40 MG, QD
  6. PIPAMPERONE [Concomitant]
     Dosage: 40 MG, QHS
  7. CARBIDOPA [Concomitant]
     Dosage: 200 MG, QHS
  8. ERGENYL [Concomitant]
     Dosage: 300 MG, BID
  9. ERGENYL [Concomitant]
     Dosage: 300 MG, QHS
  10. DOMPERIDONE [Concomitant]
  11. STALEVO 100 [Concomitant]
     Dosage: 600 MG DAILY
  12. STALEVO 100 [Concomitant]
     Dosage: 1-1-1
  13. STALEVO 100 [Concomitant]
     Dosage: 0-0-0-1
  14. DISTRANEURIN [Concomitant]

REACTIONS (13)
  - ABDOMINAL DISTENSION [None]
  - ABDOMINAL TENDERNESS [None]
  - BLADDER DISORDER [None]
  - DEATH [None]
  - DEMENTIA [None]
  - FAECALOMA [None]
  - GASTROINTESTINAL SOUNDS ABNORMAL [None]
  - ILEUS [None]
  - NAUSEA [None]
  - PANCREATITIS [None]
  - SUBILEUS [None]
  - VASCULAR ENCEPHALOPATHY [None]
  - WHITE BLOOD CELL COUNT INCREASED [None]
